FAERS Safety Report 5929735-6 (Version None)
Quarter: 2008Q3

REPORT INFORMATION
  Report Type: 
  Country: None (occurrence: None)
  Receive Date: 20080930
  Receipt Date: 20080720
  Transmission Date: 20090109
  Serious: Yes (Hospitalization, Other)
  Sender: FDA-Public Use
  Company Number: PHEH2008US06538

PATIENT
  Sex: Female
  Weight: 44.4 kg

DRUGS (1)
  1. EXELON [Suspect]
     Dates: start: 20061201, end: 20070401

REACTIONS (5)
  - ATRIAL FIBRILLATION [None]
  - CONFUSIONAL STATE [None]
  - RETCHING [None]
  - URINARY INCONTINENCE [None]
  - URINARY TRACT INFECTION [None]
